FAERS Safety Report 7006558-0 (Version None)
Quarter: 2010Q3

REPORT INFORMATION
  Report Type: 
  Country: None (occurrence: None)
  Receive Date: 20100921
  Receipt Date: 20090421
  Transmission Date: 20110219
  Serious: No
  Sender: FDA-Public Use
  Company Number: US-WYE-H09049709

PATIENT
  Sex: Male

DRUGS (3)
  1. XYNTHA [Suspect]
     Indication: FACTOR VIII DEFICIENCY
     Dosage: UNKNOWN
     Route: 042
     Dates: start: 20090416, end: 20090416
  2. XYNTHA [Suspect]
     Dosage: UNKNOWN
     Route: 042
     Dates: start: 20090421, end: 20090421
  3. SUBOXONE [Concomitant]
     Indication: DEPENDENCE

REACTIONS (6)
  - ASTHENIA [None]
  - COLD SWEAT [None]
  - DIZZINESS [None]
  - FEELING COLD [None]
  - HYPOAESTHESIA [None]
  - PARAESTHESIA [None]
